FAERS Safety Report 24878764 (Version 1)
Quarter: 2025Q1

REPORT INFORMATION
  Report Type: Spontaneous
  Country: US (occurrence: None)
  Receive Date: 20250122
  Receipt Date: 20250122
  Transmission Date: 20250409
  Serious: Yes (Life-Threatening, Hospitalization)
  Sender: FDA-CTU
  Company Number: None

PATIENT
  Age: 77 Year
  Sex: Male
  Weight: 87 kg

DRUGS (1)
  1. CILOSTAZOL [Suspect]
     Active Substance: CILOSTAZOL
     Dosage: FREQUENCY : TWICE A DAY;?
     Route: 048
     Dates: start: 20220407, end: 20241209

REACTIONS (4)
  - Cardiac failure congestive [None]
  - Tachycardia [None]
  - Contraindicated product administered [None]
  - Ejection fraction decreased [None]

NARRATIVE: CASE EVENT DATE: 20241209
